FAERS Safety Report 10057848 (Version 2)
Quarter: 2014Q2

REPORT INFORMATION
  Report Type: Report from Study
  Country: US (occurrence: US)
  Receive Date: 20140404
  Receipt Date: 20140408
  Transmission Date: 20141212
  Serious: Yes (Death)
  Sender: FDA-Public Use
  Company Number: US-ROCHE-1371770

PATIENT
  Age: 74 Year
  Sex: Female
  Weight: 80 kg

DRUGS (7)
  1. TOCILIZUMAB [Suspect]
     Indication: RHEUMATOID ARTHRITIS
     Route: 042
     Dates: start: 201311
  2. TOCILIZUMAB [Suspect]
     Route: 042
     Dates: start: 20130324
  3. EPINEPHRINE [Concomitant]
     Route: 065
  4. SOLU-MEDROL [Concomitant]
     Route: 042
  5. ORENCIA [Concomitant]
     Route: 042
  6. DICLOFENAC [Concomitant]
     Dosage: PRN
     Route: 048
  7. ZOCOR [Concomitant]
     Indication: HYPERCHOLESTEROLAEMIA

REACTIONS (7)
  - Myocardial infarction [Fatal]
  - Respiratory arrest [Fatal]
  - Hypotension [Fatal]
  - Anaphylactic reaction [Fatal]
  - Loss of consciousness [Fatal]
  - Lethargy [Unknown]
  - Respiration abnormal [Unknown]
